FAERS Safety Report 7541982-9 (Version None)
Quarter: 2011Q2

REPORT INFORMATION
  Report Type: 
  Country: None (occurrence: None)
  Receive Date: 20110606
  Receipt Date: 20110520
  Transmission Date: 20111010
  Serious: Yes (Other)
  Sender: FDA-Public Use
  Company Number: GER/GER/11/0018376

PATIENT
  Sex: Male
  Weight: 90 kg

DRUGS (4)
  1. MAGNESIUM (MAGNESIUM) [Concomitant]
  2. LORANO (LORATADINE) [Suspect]
     Indication: SEASONAL ALLERGY
  3. BALDRIPARAN (BALDRIPARAN /00712901/) [Concomitant]
  4. CETIRIZIN BETA (CETIRIZINE HYDROCHLORIDE) [Suspect]
     Indication: PRODUCT USED FOR UNKNOWN INDICATION
     Dosage: ORAL
     Route: 048
     Dates: start: 20110201

REACTIONS (2)
  - EXTRASYSTOLES [None]
  - ARRHYTHMIA [None]
